FAERS Safety Report 15964166 (Version 1)
Quarter: 2019Q1

REPORT INFORMATION
  Report Type: Spontaneous
  Country: PL (occurrence: PL)
  Receive Date: 20190214
  Receipt Date: 20190214
  Transmission Date: 20190417
  Serious: Yes (Other)
  Sender: FDA-Public Use
  Company Number: PL-BAXTER-2019BAX003208

PATIENT
  Age: 15 Year
  Sex: Female

DRUGS (7)
  1. ENDOXAN [Suspect]
     Active Substance: CYCLOPHOSPHAMIDE
     Indication: NEPHROPATHY
     Dosage: DOSE I
     Route: 042
     Dates: start: 201601, end: 201606
  2. ENDOXAN [Suspect]
     Active Substance: CYCLOPHOSPHAMIDE
     Indication: HENOCH-SCHONLEIN PURPURA
     Dosage: DOSE II
     Route: 042
     Dates: start: 201601, end: 201606
  3. ENDOXAN [Suspect]
     Active Substance: CYCLOPHOSPHAMIDE
     Dosage: DOSES III-VI IN AN AMOUNT OF APPROXIMATELY 480 MG/M2 ADMINISTERED EVERY FOUR WEEKS?TOTAL CUMULATIVE
     Route: 065
     Dates: start: 201601, end: 201606
  4. PREDNISONE. [Suspect]
     Active Substance: PREDNISONE
     Indication: HENOCH-SCHONLEIN PURPURA
  5. METHYLPREDNISOLONE. [Suspect]
     Active Substance: METHYLPREDNISOLONE
     Indication: GLOMERULONEPHRITIS RAPIDLY PROGRESSIVE
     Dosage: THREE PULSES OF METHYLPREDNISOLONE AT A DOSE OF 10 MG/KG BODY WEIGHT EVERY 48 HOURS
     Route: 065
  6. METHYLPREDNISOLONE. [Suspect]
     Active Substance: METHYLPREDNISOLONE
     Indication: PROTEINURIA
     Route: 042
  7. PREDNISONE. [Suspect]
     Active Substance: PREDNISONE
     Indication: NEPHROPATHY
     Route: 065

REACTIONS (1)
  - Drug ineffective [Unknown]
